FAERS Safety Report 19038188 (Version 1)
Quarter: 2021Q1

REPORT INFORMATION
  Report Type: Spontaneous
  Country: FR (occurrence: FR)
  Receive Date: 20210322
  Receipt Date: 20210322
  Transmission Date: 20210420
  Serious: Yes (Other)
  Sender: FDA-Public Use
  Company Number: FR-TEVA-2021-FR-1893599

PATIENT
  Age: 41 Year
  Sex: Female
  Weight: 28 kg

DRUGS (2)
  1. PROGESTAN 100 MG, CAPSULE MOLLE OU CAPSULE MOLLE VAGINALE [Suspect]
     Active Substance: PROGESTERONE
     Indication: OSTEOPOROSIS PROPHYLAXIS
     Dosage: 100 MILLIGRAM DAILY;
     Route: 048
     Dates: start: 20200915, end: 20201008
  2. ESTREVA 0,1 %, GEL [Suspect]
     Active Substance: ESTRADIOL
     Indication: OSTEOPOROSIS PROPHYLAXIS
     Dosage: 1 DOSAGE FORMS DAILY;
     Route: 003
     Dates: start: 20200915, end: 20201008

REACTIONS (1)
  - Hepatitis acute [Recovering/Resolving]

NARRATIVE: CASE EVENT DATE: 20201008
